FAERS Safety Report 5369657-5 (Version None)
Quarter: 2007Q2

REPORT INFORMATION
  Report Type: 
  Country: None (occurrence: None)
  Receive Date: 20070625
  Receipt Date: 20070620
  Transmission Date: 20071010
  Serious: Yes (Disabling)
  Sender: FDA-Public Use
  Company Number: GB-PFIZER INC-2007048182

PATIENT
  Age: 67 Year
  Sex: Male

DRUGS (6)
  1. AMLODIPINE [Suspect]
     Indication: ANGINA PECTORIS
     Route: 048
  2. ATENOLOL [Suspect]
     Indication: ANGINA PECTORIS
     Route: 048
     Dates: start: 20060302
  3. GLICLAZIDE [Suspect]
     Indication: DIABETES MELLITUS
     Route: 048
  4. GLUCOPHAGE [Suspect]
     Indication: DIABETES MELLITUS
     Route: 048
     Dates: start: 20061120
  5. RAMIPRIL [Suspect]
     Indication: ANGINA PECTORIS
     Route: 048
  6. SIMVASTATIN [Concomitant]
     Indication: MYOCARDIAL ISCHAEMIA
     Dosage: DAILY DOSE:20MG
     Route: 048

REACTIONS (2)
  - DELUSIONAL DISORDER, JEALOUS TYPE [None]
  - SLEEP TERROR [None]
